FAERS Safety Report 10055807 (Version 1)
Quarter: 2014Q2

REPORT INFORMATION
  Report Type: Spontaneous
  Country: US (occurrence: US)
  Receive Date: 20140403
  Receipt Date: 20140403
  Transmission Date: 20141212
  Serious: Yes (Other)
  Sender: FDA-Public Use
  Company Number: US-ASTRAZENECA-2014SE21538

PATIENT
  Age: 61 Year
  Sex: Male
  Weight: 117.9 kg

DRUGS (18)
  1. SYMBICORT [Suspect]
     Indication: CHRONIC OBSTRUCTIVE PULMONARY DISEASE
     Dosage: 160/4.5 MCG 2 PUFFS BID
     Route: 055
     Dates: start: 20130816, end: 2013
  2. LISINOPRIL [Suspect]
     Indication: HYPERTENSION
     Route: 048
     Dates: start: 1991
  3. PRILOSEC [Suspect]
     Indication: ABDOMINAL DISCOMFORT
     Route: 048
     Dates: start: 2010
  4. CRESTOR [Suspect]
     Indication: BLOOD CHOLESTEROL
     Route: 048
     Dates: start: 1991
  5. PROAIR [Concomitant]
     Indication: CHRONIC OBSTRUCTIVE PULMONARY DISEASE
     Dosage: 8.5 TID
     Route: 055
     Dates: start: 201308
  6. AMIODARONE [Concomitant]
     Indication: ARRHYTHMIA
     Route: 048
     Dates: start: 201003
  7. ASPIRIN [Concomitant]
     Indication: CARDIAC DISORDER
     Route: 048
  8. CARVEDILOL [Concomitant]
     Indication: CARDIAC DISORDER
     Dosage: 3.125 BID
     Route: 048
     Dates: start: 199106
  9. PLAVIX [Concomitant]
     Indication: ANTICOAGULANT THERAPY
     Route: 048
     Dates: start: 1991
  10. DILTIAZEM [Concomitant]
     Indication: CARDIAC DISORDER
     Route: 048
     Dates: start: 1991
  11. FUROSEMIDE [Concomitant]
     Indication: FLUID RETENTION
     Route: 048
     Dates: start: 2010
  12. ISOSORBIDE MONOHYDRATE [Concomitant]
     Indication: BLOOD PRESSURE ABNORMAL
     Route: 048
     Dates: start: 1991
  13. LEVOTHYROXINE [Concomitant]
     Indication: THYROID DISORDER
     Route: 048
     Dates: start: 2013
  14. METFORMIN [Concomitant]
     Indication: DIABETES MELLITUS
     Route: 048
     Dates: start: 201309
  15. UBIQUINONE [Concomitant]
     Route: 048
  16. KLOR-CON [Concomitant]
     Indication: BLOOD POTASSIUM
     Route: 048
     Dates: start: 2010
  17. OMEGA 3 FISH OIL [Concomitant]
     Indication: CARDIAC DISORDER
     Route: 048
     Dates: start: 1991
  18. MENS MULTIVITAMIN [Concomitant]
     Indication: SUPPLEMENTATION THERAPY
     Dosage: NR DAILY
     Route: 048

REACTIONS (12)
  - Arrhythmia [Not Recovered/Not Resolved]
  - Respiratory tract congestion [Unknown]
  - Immune system disorder [Not Recovered/Not Resolved]
  - Tongue disorder [Not Recovered/Not Resolved]
  - Oral disorder [Not Recovered/Not Resolved]
  - Paranasal sinus discomfort [Unknown]
  - Gastritis [Unknown]
  - Irritable bowel syndrome [Unknown]
  - Diarrhoea [Recovering/Resolving]
  - Oral candidiasis [Recovered/Resolved]
  - Oropharyngeal pain [Unknown]
  - Intentional product misuse [Unknown]
